FAERS Safety Report 9115302 (Version 1)
Quarter: 2013Q1

REPORT INFORMATION
  Report Type: Spontaneous
  Country: GB (occurrence: GB)
  Receive Date: 20130225
  Receipt Date: 20130225
  Transmission Date: 20140127
  Serious: Yes (Hospitalization)
  Sender: FDA-Public Use
  Company Number: GB-ASTRAZENECA-2013SE10249

PATIENT
  Age: 73 Year
  Sex: 0
  Weight: 71 kg

DRUGS (8)
  1. BRILIQUE [Suspect]
     Indication: ANTIPLATELET THERAPY
     Route: 048
     Dates: start: 20121016, end: 20121220
  2. ASPIRIN [Concomitant]
  3. BISOPROLOL [Concomitant]
  4. LANSOPRAZOLE [Concomitant]
  5. LEVOTHYROXINE [Concomitant]
  6. LOSARTAN [Concomitant]
  7. ROSUVASTATIN [Concomitant]
  8. TIOTROPIUM [Concomitant]

REACTIONS (3)
  - Visual impairment [Not Recovered/Not Resolved]
  - Dyspnoea [Recovered/Resolved]
  - Eye haemorrhage [Not Recovered/Not Resolved]
